FAERS Safety Report 4692602-2 (Version None)
Quarter: 2005Q2

REPORT INFORMATION
  Report Type: 
  Country: None (occurrence: None)
  Receive Date: 20050617
  Receipt Date: 20050314
  Transmission Date: 20051028
  Serious: Yes (Hospitalization, Other)
  Sender: FDA-Public Use
  Company Number: US-MERCK-0503USA02978

PATIENT
  Age: 48 Year
  Sex: Female
  Weight: 62 kg

DRUGS (22)
  1. VIOXX [Suspect]
     Indication: ARTHRITIS
     Route: 048
     Dates: start: 19990101, end: 20010101
  2. ASACOL [Concomitant]
     Route: 065
  3. CLARITIN [Concomitant]
     Route: 065
  4. PREVACID [Concomitant]
     Route: 065
  5. SINGULAIR [Concomitant]
     Route: 065
  6. ARTHROTEC [Concomitant]
     Route: 065
  7. NEURONTIN [Concomitant]
     Route: 065
  8. CELEBREX [Concomitant]
     Route: 065
  9. PLAVIX [Concomitant]
     Route: 065
  10. NASAREL [Concomitant]
     Route: 065
  11. AMITRIPTYLINE HYDROCHLORIDE [Concomitant]
     Route: 065
  12. ULTRAM [Concomitant]
     Route: 065
  13. LEXAPRO [Concomitant]
     Route: 065
  14. ZYRTEC [Concomitant]
     Route: 065
  15. HYDROCHLOROTHIAZIDE [Concomitant]
     Route: 065
  16. AMBIEN [Concomitant]
     Route: 065
  17. ZELNORM [Concomitant]
     Route: 065
  18. CYCLOBENZAPRINE HYDROCHLORIDE [Concomitant]
     Route: 065
  19. PEPCID [Concomitant]
     Route: 065
  20. ALBUTEROL [Concomitant]
     Route: 065
  21. Z-PAK [Concomitant]
     Route: 065
  22. ASPIRIN [Concomitant]
     Route: 065
     Dates: start: 20010101

REACTIONS (22)
  - ABDOMINAL DISTENSION [None]
  - ADVERSE EVENT [None]
  - BONE PAIN [None]
  - CEREBROVASCULAR ACCIDENT [None]
  - CONVULSION [None]
  - DYSPHAGIA [None]
  - DYSPNOEA [None]
  - FATIGUE [None]
  - FIBROMYALGIA [None]
  - GASTROINTESTINAL DISORDER [None]
  - GASTROINTESTINAL HAEMORRHAGE [None]
  - GASTROOESOPHAGEAL REFLUX DISEASE [None]
  - HAEMATOCHEZIA [None]
  - HERNIA [None]
  - HYPERTENSION [None]
  - MYALGIA [None]
  - NAUSEA [None]
  - OESOPHAGEAL DISORDER [None]
  - PAIN [None]
  - PANIC ATTACK [None]
  - URINARY TRACT INFECTION [None]
  - VOMITING [None]
